FAERS Safety Report 11473881 (Version 1)
Quarter: 2015Q3

REPORT INFORMATION
  Report Type: Spontaneous
  Country: US (occurrence: US)
  Receive Date: 20150908
  Receipt Date: 20150908
  Transmission Date: 20151125
  Serious: No
  Sender: FDA-Public Use
  Company Number: US-JAZZ-2013-US-001297

PATIENT
  Age: 46 Year
  Sex: Female

DRUGS (6)
  1. ESTRADIOL. [Concomitant]
     Active Substance: ESTRADIOL
     Indication: HYSTERECTOMY
     Dosage: 2 MG, QD
     Route: 048
  2. EXFORGE HCT [Concomitant]
     Active Substance: AMLODIPINE BESYLATE\HYDROCHLOROTHIAZIDE\VALSARTAN
     Indication: HYPERTENSION
     Dosage: UNSPECIFIED DOSE ONCE DAILY
     Route: 048
  3. MODAFINIL. [Concomitant]
     Active Substance: MODAFINIL
     Indication: SLEEP DISORDER
     Dosage: 200 MG, PRN
     Route: 048
  4. XYREM [Suspect]
     Active Substance: SODIUM OXYBATE
     Indication: SLEEP DISORDER
     Dosage: 4.5 G, BID
     Route: 048
     Dates: start: 201205
  5. SERTRALINE HCL [Concomitant]
     Active Substance: SERTRALINE HYDROCHLORIDE
     Indication: DEPRESSION
     Dosage: 100 MG, QD
     Route: 048
  6. DEXILANT [Concomitant]
     Active Substance: DEXLANSOPRAZOLE
     Indication: GASTROOESOPHAGEAL REFLUX DISEASE
     Dosage: 60 MG, QD
     Route: 048

REACTIONS (9)
  - Off label use [Unknown]
  - Poor quality sleep [Not Recovered/Not Resolved]
  - Ligament rupture [Recovering/Resolving]
  - Activities of daily living impaired [Not Recovered/Not Resolved]
  - Therapeutic response unexpected [Unknown]
  - Ligament operation [Unknown]
  - Insomnia [Not Recovered/Not Resolved]
  - Fatigue [Not Recovered/Not Resolved]
  - Therapeutic response decreased [Unknown]

NARRATIVE: CASE EVENT DATE: 2012
